FAERS Safety Report 9262498 (Version 2)
Quarter: 2013Q2

REPORT INFORMATION
  Report Type: Spontaneous
  Country: US (occurrence: US)
  Receive Date: 20130430
  Receipt Date: 20130618
  Transmission Date: 20140414
  Serious: No
  Sender: FDA-Public Use
  Company Number: US-009507513-1304USA015953

PATIENT
  Sex: Male

DRUGS (1)
  1. PROVENTIL [Suspect]

REACTIONS (2)
  - Dyspnoea [Unknown]
  - Drug dose omission [Unknown]
